FAERS Safety Report 18161428 (Version 1)
Quarter: 2020Q3

REPORT INFORMATION
  Report Type: Spontaneous
  Country: IT (occurrence: IT)
  Receive Date: 20200818
  Receipt Date: 20200818
  Transmission Date: 20201103
  Serious: Yes (Hospitalization, Other)
  Sender: FDA-Public Use
  Company Number: IT-PFIZER INC-2020314152

PATIENT
  Age: 34 Year
  Sex: Female

DRUGS (4)
  1. CABERGOLINE. [Suspect]
     Active Substance: CABERGOLINE
     Indication: LACTATION INHIBITION THERAPY
     Dosage: 1 MG
     Route: 065
  2. BUDESONIDE. [Concomitant]
     Active Substance: BUDESONIDE
     Indication: ASTHMA
     Dosage: UNK
     Route: 065
  3. FORMOTEROL [Concomitant]
     Active Substance: FORMOTEROL
     Indication: ASTHMA
     Dosage: UNK
     Route: 065
  4. KETOROLAC [Suspect]
     Active Substance: KETOROLAC TROMETHAMINE
     Indication: HEADACHE
     Dosage: UNK
     Route: 065

REACTIONS (1)
  - Kounis syndrome [Unknown]
